FAERS Safety Report 6750966-X (Version None)
Quarter: 2010Q2

REPORT INFORMATION
  Report Type: 
  Country: None (occurrence: None)
  Receive Date: 20100528
  Receipt Date: 20100514
  Transmission Date: 20101027
  Serious: Yes (Death)
  Sender: FDA-Public Use
  Company Number: AUR-APL-2010-01314

PATIENT
  Age: 5 Year
  Sex: Male

DRUGS (1)
  1. ONDANSETRON [Suspect]
     Indication: VOMITING
     Dosage: 2MG - X1 - SUBLINGUALLY/ 1 DOSE
     Route: 060

REACTIONS (12)
  - BLOOD POTASSIUM INCREASED [None]
  - BRONCHOPNEUMONIA [None]
  - CARDIAC ARREST [None]
  - DRUG INEFFECTIVE [None]
  - ENTEROVIRUS TEST POSITIVE [None]
  - HEPATIC INFECTION BACTERIAL [None]
  - HYPERTHERMIA [None]
  - LYMPHADENOPATHY [None]
  - MUSCLE RIGIDITY [None]
  - THERAPEUTIC RESPONSE UNEXPECTED [None]
  - THROMBOSIS [None]
  - VENTRICULAR TACHYCARDIA [None]
